FAERS Safety Report 15265545 (Version 1)
Quarter: 2018Q3

REPORT INFORMATION
  Report Type: Report from Study
  Country: None (occurrence: GB)
  Receive Date: 20180810
  Receipt Date: 20180810
  Transmission Date: 20181010
  Serious: Yes (Hospitalization, Other)
  Sender: FDA-Public Use
  Company Number: GB-BIOVERATIV-2018BV000178

PATIENT
  Age: 1 Year
  Sex: Male
  Weight: 6.4 kg

DRUGS (6)
  1. PIPTAZOBACTAM [Concomitant]
     Indication: PYREXIA
     Dosage: 1.0 (UNITS UNKNOWN)
     Route: 042
     Dates: start: 20180320, end: 20180323
  2. ANTIHEMOPHILIC FACTOR (RECOMBINANT), FC FUSION PROTEIN [Suspect]
     Active Substance: (1-743)-(1638-2332)-BLOOD-COAGULATION FACTOR VIII (SYNTHETIC HUMAN) FUSION PROTEIN WITH IMMUNOGLOBULIN G1 (SYNTHETIC HUMAN FC DOMAIN FRAGMENT), (1444-6^),(1447-9^)-BIS(DISULFIDE) WITH IMMUNOGLOBULIN G1 (SYNTHETIC HUMAN FC DOMAIN FRAGMENT)
     Indication: FACTOR VIII DEFICIENCY
     Dosage: 1 DOSE PRIOR TO EVENT? STILL AT SCREENING
     Route: 042
     Dates: start: 20180322
  3. GENTAMICIN. [Concomitant]
     Active Substance: GENTAMICIN
     Indication: PYREXIA
     Dosage: 1.0 (UNKNOWN UNITS)
     Route: 042
     Dates: start: 20180320, end: 20180323
  4. PIPTAZOBACTAM [Concomitant]
     Dosage: 1.0 (UNITS UNKNOWN)
     Route: 042
     Dates: start: 20180327, end: 20180329
  5. ANTIHEMOPHILIC FACTOR (RECOMBINANT), FC FUSION PROTEIN [Suspect]
     Active Substance: (1-743)-(1638-2332)-BLOOD-COAGULATION FACTOR VIII (SYNTHETIC HUMAN) FUSION PROTEIN WITH IMMUNOGLOBULIN G1 (SYNTHETIC HUMAN FC DOMAIN FRAGMENT), (1444-6^),(1447-9^)-BIS(DISULFIDE) WITH IMMUNOGLOBULIN G1 (SYNTHETIC HUMAN FC DOMAIN FRAGMENT)
     Indication: HAEMORRHAGE
     Route: 042
  6. GENTAMICIN. [Concomitant]
     Active Substance: GENTAMICIN
     Dosage: 1.0 (UNKNOWN UNITS)
     Route: 042
     Dates: start: 20180327, end: 20180329

REACTIONS (1)
  - Pyrexia [Recovered/Resolved]

NARRATIVE: CASE EVENT DATE: 20180327
